FAERS Safety Report 16701760 (Version 2)
Quarter: 2019Q3

REPORT INFORMATION
  Report Type: Report from Study
  Country: US (occurrence: US)
  Receive Date: 20190814
  Receipt Date: 20190821
  Transmission Date: 20191004
  Serious: Yes (Other)
  Sender: FDA-Public Use
  Company Number: US-TEVA-2019-US-1091712

PATIENT
  Sex: Male

DRUGS (2)
  1. CLOZAPINE TEVA [Suspect]
     Active Substance: CLOZAPINE
     Route: 048
  2. CLOZAPINE TEVA [Suspect]
     Active Substance: CLOZAPINE
     Route: 065

REACTIONS (2)
  - Granulocytopenia [Unknown]
  - Agranulocytosis [Unknown]
